FAERS Safety Report 25800657 (Version 1)
Quarter: 2025Q3

REPORT INFORMATION
  Report Type: Spontaneous
  Country: CN (occurrence: CN)
  Receive Date: 20250915
  Receipt Date: 20250915
  Transmission Date: 20251021
  Serious: Yes (Hospitalization)
  Sender: ROCHE
  Company Number: CN-ROCHE-10000384315

PATIENT
  Age: 75 Year
  Sex: Female

DRUGS (3)
  1. TRASTUZUMAB [Suspect]
     Active Substance: TRASTUZUMAB
     Indication: Breast cancer
     Route: 042
     Dates: start: 20250724, end: 20250724
  2. DOCETAXEL [Suspect]
     Active Substance: DOCETAXEL
     Indication: Breast cancer
     Dosage: NMPA APPROVAL NO. H20163032
     Route: 042
     Dates: start: 20250725, end: 20250725
  3. CYCLOPHOSPHAMIDE [Suspect]
     Active Substance: CYCLOPHOSPHAMIDE
     Indication: Breast cancer
     Route: 042
     Dates: start: 20250725, end: 20250725

REACTIONS (4)
  - Hepatic function abnormal [Recovering/Resolving]
  - Asthenia [Recovering/Resolving]
  - Yellow skin [Recovering/Resolving]
  - Hepatitis E antibody positive [Recovering/Resolving]

NARRATIVE: CASE EVENT DATE: 20250822
